FAERS Safety Report 5659006-7 (Version None)
Quarter: 2008Q1

REPORT INFORMATION
  Report Type: 
  Country: None (occurrence: None)
  Receive Date: 20080310
  Receipt Date: 20071004
  Transmission Date: 20080703
  Serious: No
  Sender: FDA-Public Use
  Company Number: US-BAYER-200711577BCC

PATIENT
  Age: 72 Year
  Sex: Female
  Weight: 91 kg

DRUGS (9)
  1. ALEVE [Suspect]
     Indication: OSTEOARTHRITIS
     Dosage: UNIT DOSE: 220 MG
     Route: 048
     Dates: start: 20070513, end: 20070516
  2. ASPIRIN [Suspect]
     Indication: DRUG USE FOR UNKNOWN INDICATION
     Dosage: TOTAL DAILY DOSE: 81 MG  UNIT DOSE: 81 MG
     Route: 048
     Dates: start: 20020101, end: 20070517
  3. AVALIDE [Concomitant]
  4. ALBUTEROL [Concomitant]
     Route: 055
  5. LEXAPRO [Concomitant]
  6. TOPROL [Concomitant]
  7. LORATADINE [Concomitant]
  8. SINGULAIR [Concomitant]
  9. LIPITOR [Concomitant]

REACTIONS (1)
  - DYSPNOEA [None]
